FAERS Safety Report 4955237-X (Version None)
Quarter: 2006Q1

REPORT INFORMATION
  Report Type: 
  Country: None (occurrence: None)
  Receive Date: 20060328
  Receipt Date: 20060316
  Transmission Date: 20060701
  Serious: Yes (Death, Other)
  Sender: FDA-Public Use
  Company Number: 2006SE01575

PATIENT
  Age: 28800 Day
  Sex: Male

DRUGS (4)
  1. ZOLADEX [Suspect]
     Indication: PROSTATE CANCER
     Route: 058
     Dates: start: 20051201, end: 20060307
  2. ZOLADEX [Suspect]
     Indication: METASTASES TO BONE
     Route: 058
     Dates: start: 20051201, end: 20060307
  3. CYPROTERONE ACETATE [Suspect]
     Indication: PROSTATE CANCER
     Route: 048
     Dates: start: 20051201, end: 20060307
  4. CYPROTERONE ACETATE [Suspect]
     Indication: METASTASES TO BONE
     Route: 048
     Dates: start: 20051201, end: 20060307

REACTIONS (6)
  - HEPATIC ENCEPHALOPATHY [None]
  - HEPATIC NECROSIS [None]
  - HEPATITIS ACUTE [None]
  - HEPATITIS CHOLESTATIC [None]
  - HEPATORENAL SYNDROME [None]
  - ORGAN FAILURE [None]
